FAERS Safety Report 18485015 (Version 1)
Quarter: 2020Q4

REPORT INFORMATION
  Report Type: Spontaneous
  Country: DE (occurrence: DE)
  Receive Date: 20201110
  Receipt Date: 20201110
  Transmission Date: 20210114
  Serious: Yes (Other)
  Sender: FDA-Public Use
  Company Number: DE-TEVA-2020-DE-1847285

PATIENT
  Sex: Female

DRUGS (1)
  1. QUETIAPIN ABZ 1600 MG RETARD [Suspect]
     Active Substance: QUETIAPINE
     Dosage: 1600 MILLIGRAM DAILY; IN THE EVENING
     Route: 048
     Dates: start: 2015

REACTIONS (5)
  - Hypothyroidism [Not Recovered/Not Resolved]
  - Hepatic steatosis [Not Recovered/Not Resolved]
  - Type 2 diabetes mellitus [Not Recovered/Not Resolved]
  - Autoimmune thyroiditis [Not Recovered/Not Resolved]
  - Weight increased [Not Recovered/Not Resolved]

NARRATIVE: CASE EVENT DATE: 2015
